FAERS Safety Report 8272965 (Version 3)
Quarter: 2014Q1

REPORT INFORMATION
  Report Type: Spontaneous
  Country: US (occurrence: US)
  Receive Date: 20111202
  Receipt Date: 20140121
  Transmission Date: 20141002
  Serious: Yes (Other)
  Sender: FDA-Public Use
  Company Number: US-BAYER-2011-115787

PATIENT
  Age: 45 Year
  Sex: Female
  Weight: 63 kg

DRUGS (7)
  1. YAZ [Suspect]
     Indication: PREMENSTRUAL DYSPHORIC DISORDER
     Dosage: UNK
     Route: 048
     Dates: start: 200902, end: 201001
  2. CINNAMON [Concomitant]
     Dosage: UNK
     Dates: start: 20100921, end: 20121113
  3. CALCIUM [Concomitant]
     Dosage: UNK
     Dates: start: 20100921, end: 20121113
  4. LYSINE [Concomitant]
     Dosage: DAILY
     Dates: start: 20100921, end: 20121113
  5. ALLEGRA-D [Concomitant]
     Dosage: UNK
     Dates: start: 20100921, end: 20121113
  6. METHYLSULFONYLMETHANE [Concomitant]
  7. VITAMIN C [Concomitant]

REACTIONS (11)
  - Biliary colic [None]
  - Chest discomfort [None]
  - Nausea [None]
  - Hyperhidrosis [None]
  - Injury [None]
  - Pain [None]
  - Emotional distress [None]
  - Depression [None]
  - Fear of death [None]
  - Nervousness [None]
  - Cholecystitis chronic [None]
